FAERS Safety Report 13650519 (Version 3)
Quarter: 2017Q3

REPORT INFORMATION
  Report Type: Other
  Country: IT (occurrence: IT)
  Receive Date: 20170614
  Receipt Date: 20170922
  Transmission Date: 20171127
  Serious: Yes (Hospitalization, Other)
  Sender: FDA-Public Use
  Company Number: IT-APOTEX-2017AP012926

PATIENT
  Age: 63 Year
  Sex: Male

DRUGS (7)
  1. CYANOCOBALAMIN. [Concomitant]
     Active Substance: CYANOCOBALAMIN
     Indication: TEMPORAL ARTERITIS
     Dosage: 1000 U 1 VIAL, Q.WK.
     Route: 065
  2. DELTACORTENE [Concomitant]
     Active Substance: PREDNISONE
     Indication: PRODUCT USED FOR UNKNOWN INDICATION
     Dosage: 25 MG, UNK
     Route: 065
  3. ZIRTEC [Concomitant]
     Active Substance: CETIRIZINE HYDROCHLORIDE
     Indication: PRODUCT USED FOR UNKNOWN INDICATION
     Dosage: 10 MG, UNK
     Route: 065
  4. PREDNISONE. [Concomitant]
     Active Substance: PREDNISONE
     Indication: TEMPORAL ARTERITIS
     Dosage: 50 MG, DAILY (AT ESCALATING DOSE)
     Route: 065
  5. PANTOPRAZOLE 20 [Suspect]
     Active Substance: PANTOPRAZOLE SODIUM
     Indication: GASTROOESOPHAGEAL REFLUX PROPHYLAXIS
     Dosage: 20 MG, QD
     Route: 048
     Dates: start: 20170404, end: 20170502
  6. SYNFLEX                            /00256202/ [Suspect]
     Active Substance: NAPROXEN SODIUM
     Indication: NECK PAIN
     Dosage: 550 MG, QD
     Route: 048
     Dates: start: 20170426, end: 20170426
  7. FOLIC ACID. [Concomitant]
     Active Substance: FOLIC ACID
     Indication: TEMPORAL ARTERITIS
     Dosage: 5 MG, QD
     Route: 065

REACTIONS (4)
  - Toxic skin eruption [Recovered/Resolved with Sequelae]
  - Toxic skin eruption [Recovering/Resolving]
  - Skin exfoliation [Recovering/Resolving]
  - Skin exfoliation [Recovered/Resolved with Sequelae]

NARRATIVE: CASE EVENT DATE: 20170502
